FAERS Safety Report 10276189 (Version 2)
Quarter: 2014Q3

REPORT INFORMATION
  Report Type: Spontaneous
  Country: US (occurrence: US)
  Receive Date: 20140703
  Receipt Date: 20140715
  Transmission Date: 20150326
  Serious: Yes (Other)
  Sender: FDA-Public Use
  Company Number: US-SA-2014SA083808

PATIENT
  Sex: Female

DRUGS (4)
  1. SULFONAMIDES [Suspect]
     Active Substance: UNSPECIFIED INGREDIENT
     Indication: PRODUCT USED FOR UNKNOWN INDICATION
     Route: 065
  2. ADVAIR HFA [Suspect]
     Active Substance: FLUTICASONE PROPIONATE\SALMETEROL XINAFOATE
     Indication: CHRONIC OBSTRUCTIVE PULMONARY DISEASE
     Route: 055
  3. AUVI-Q [Suspect]
     Active Substance: EPINEPHRINE
     Indication: PRODUCT USED FOR UNKNOWN INDICATION
     Route: 065
  4. ALBUTEROL SULFATE. [Suspect]
     Active Substance: ALBUTEROL SULFATE
     Indication: CHRONIC OBSTRUCTIVE PULMONARY DISEASE
     Route: 055

REACTIONS (24)
  - Intervertebral disc degeneration [Unknown]
  - Viral infection [Unknown]
  - Skin lesion [Unknown]
  - Contusion [Unknown]
  - Epstein-Barr virus infection [Unknown]
  - Motor dysfunction [Unknown]
  - Carpal tunnel syndrome [Unknown]
  - Sensory loss [Unknown]
  - Wheezing [Unknown]
  - Sleep apnoea syndrome [Unknown]
  - Drug hypersensitivity [Unknown]
  - Malaise [Unknown]
  - Skin ulcer [Unknown]
  - Scar [Unknown]
  - Alopecia [Unknown]
  - Chronic fatigue syndrome [Unknown]
  - Hypertrophic cardiomyopathy [Unknown]
  - Somnolence [Unknown]
  - Rash generalised [Unknown]
  - Oropharyngeal swelling [Unknown]
  - Skin disorder [Unknown]
  - Erythema [Unknown]
  - Anxiety [Unknown]
  - Dyspnoea [Unknown]
